FAERS Safety Report 18249226 (Version 1)
Quarter: 2020Q3

REPORT INFORMATION
  Report Type: Other
  Country: CN (occurrence: CN)
  Receive Date: 20200910
  Receipt Date: 20200910
  Transmission Date: 20201103
  Serious: Yes (Death, Other)
  Sender: FDA-Public Use
  Company Number: CN-ROCHE-2673624

PATIENT

DRUGS (8)
  1. CYCLOPHOSPHAMIDE. [Suspect]
     Active Substance: CYCLOPHOSPHAMIDE
     Indication: DIFFUSE LARGE B-CELL LYMPHOMA
     Dosage: R?RICHOP REGIMEN AND R?COP REGIMEN: 750 MG/M2; R?MINICHOP REGIMEN: 400 MG/M2
     Route: 065
  2. LIPOSOMAL DOXORUBICIN [Suspect]
     Active Substance: DOXORUBICIN HYDROCHLORIDE
     Indication: DIFFUSE LARGE B-CELL LYMPHOMA
     Dosage: R?RICHOP REGIMEN: 20?30 MG; R?MINICHOP REGIMEN: 20 MG
     Route: 065
  3. DOXORUBICIN [Suspect]
     Active Substance: DOXORUBICIN
     Indication: DIFFUSE LARGE B-CELL LYMPHOMA
     Dosage: R?RICHOP REGIMEN: 25?35 MG/M2; R?MINICHOP REGIMEN: 25 MG/M2
     Route: 065
  4. VINCRISTINE [Suspect]
     Active Substance: VINCRISTINE
     Indication: DIFFUSE LARGE B-CELL LYMPHOMA
     Dosage: R?RICHOP REGIMEN AND R?COP REGIMEN: 1.4 MG/M2 ({/= 2 MG/D); R?MINICHOP REGIMEN: 2 MG
     Route: 065
  5. PREDNISONE. [Suspect]
     Active Substance: PREDNISONE
     Indication: DIFFUSE LARGE B-CELL LYMPHOMA
     Dosage: R?RICHOP REGIMEN AND  R?COP REGIMEN: 100 MG/D; R?MINICHOP REGIMEN: 40 MG/M2/D
     Route: 065
  6. RITUXIMAB. [Suspect]
     Active Substance: RITUXIMAB
     Indication: DIFFUSE LARGE B-CELL LYMPHOMA
     Route: 041
  7. VINDESINE [Suspect]
     Active Substance: VINDESINE
     Indication: DIFFUSE LARGE B-CELL LYMPHOMA
     Dosage: R?RICHOP REGIMEN AND  R?COP REGIMEN: 4 MG
     Route: 065
  8. EPIRUBICIN [Suspect]
     Active Substance: EPIRUBICIN
     Indication: DIFFUSE LARGE B-CELL LYMPHOMA
     Dosage: R?RICHOP REGIMEN: 35?50 MG/2; R?MINICHOP REGIMEN: 35 MG/M2
     Route: 065

REACTIONS (8)
  - Gastrointestinal haemorrhage [Fatal]
  - Gastrointestinal toxicity [Unknown]
  - Cardiotoxicity [Unknown]
  - Myocardial infarction [Fatal]
  - Infection [Fatal]
  - Pulmonary toxicity [Unknown]
  - Haematotoxicity [Unknown]
  - Neurotoxicity [Unknown]
